FAERS Safety Report 8422340-1 (Version None)
Quarter: 2012Q2

REPORT INFORMATION
  Report Type: 
  Country: None (occurrence: None)
  Receive Date: 20120604
  Receipt Date: 20120524
  Transmission Date: 20120825
  Serious: Yes (Disabling)
  Sender: FDA-Public Use
  Company Number: 2012SP028374

PATIENT
  Age: 54 Year
  Sex: Female

DRUGS (2)
  1. PEG-INTRON [Suspect]
     Indication: HEPATITIS C
     Dosage: 99 MCG;QW;SC
     Dates: start: 20120201
  2. DILAUDID [Concomitant]

REACTIONS (7)
  - DRUG DOSE OMISSION [None]
  - MUSCLE SPASMS [None]
  - DRUG INEFFECTIVE [None]
  - SPINAL PAIN [None]
  - PAIN IN EXTREMITY [None]
  - MOBILITY DECREASED [None]
  - CHEST PAIN [None]
